FAERS Safety Report 10154838 (Version 2)
Quarter: 2014Q3

REPORT INFORMATION
  Report Type: Report from Study
  Country: CA (occurrence: CA)
  Receive Date: 20140506
  Receipt Date: 20140714
  Transmission Date: 20150326
  Serious: Yes (Other)
  Sender: FDA-Public Use
  Company Number: CA-SA-2014SA054255

PATIENT
  Sex: Male

DRUGS (4)
  1. STELARA [Suspect]
     Active Substance: USTEKINUMAB
     Indication: MATERNAL EXPOSURE TIMING UNSPECIFIED
     Dosage: FORM: SOLUTION SUBCUTANEOUS??FREQ.:1 EVERY 12 WEEKS
     Route: 064
  2. STELARA [Suspect]
     Active Substance: USTEKINUMAB
     Indication: MATERNAL EXPOSURE TIMING UNSPECIFIED
     Dosage: FREQ.: 1 IN 8 WEEKS
     Route: 064
     Dates: start: 2013
  3. LOVENOX [Suspect]
     Active Substance: ENOXAPARIN SODIUM
     Indication: MATERNAL EXPOSURE TIMING UNSPECIFIED
     Dosage: FORM: SOLUTION SUBCUTANEOUS
     Route: 064
  4. LOVENOX [Suspect]
     Active Substance: ENOXAPARIN SODIUM
     Indication: MATERNAL EXPOSURE TIMING UNSPECIFIED
     Route: 064
     Dates: start: 2012, end: 2013

REACTIONS (4)
  - Asthma [Unknown]
  - Psoriasis [Unknown]
  - Foetal exposure during pregnancy [Unknown]
  - Premature baby [Unknown]

NARRATIVE: CASE EVENT DATE: 2013
